FAERS Safety Report 5811406-8 (Version None)
Quarter: 2008Q3

REPORT INFORMATION
  Report Type: 
  Country: None (occurrence: None)
  Receive Date: 20080716
  Receipt Date: 20080708
  Transmission Date: 20090109
  Serious: Yes (Death)
  Sender: FDA-Public Use
  Company Number: US-PURDUE-USA_2008_0032839

PATIENT
  Age: 46 Year
  Sex: Male
  Weight: 121 kg

DRUGS (5)
  1. OXYCONTIN [Suspect]
     Indication: BACK PAIN
     Dosage: 400 MG, DAILY
  2. OXYIR CAPSULES 5 MG [Suspect]
     Indication: BACK PAIN
     Dosage: 5 MG, QID PRN
  3. LASIX [Concomitant]
     Indication: SWELLING
     Dosage: 20 MG, BID PRN
     Dates: start: 20070101
  4. XANAX [Concomitant]
     Indication: ANXIETY
     Dosage: 2 MG, TID
     Dates: start: 20050101
  5. FLEXERIL [Concomitant]
     Indication: MUSCLE SPASMS
     Dosage: 10 MG, TID PRN
     Dates: start: 20070101

REACTIONS (1)
  - ROAD TRAFFIC ACCIDENT [None]
